FAERS Safety Report 5175303-6 (Version None)
Quarter: 2006Q4

REPORT INFORMATION
  Report Type: 
  Country: None (occurrence: None)
  Receive Date: 20061211
  Receipt Date: 20061211
  Transmission Date: 20070319
  Serious: No
  Sender: FDA-Public Use
  Company Number: None

PATIENT
  Age: 50 Year
  Sex: Male
  Weight: 99.7913 kg

DRUGS (2)
  1. GENTAMICIN SULFATE [Suspect]
     Indication: ENDOCARDITIS
     Dosage: 160ML/35 ML NS SYRNG  EVERY 12 HOURS  INTRA-ARTER
     Route: 013
     Dates: start: 20060831, end: 20061005
  2. VANCOMYCIN [Suspect]
     Indication: ENDOCARDITIS
     Dosage: 1000MG/40 ML NS SYRNG  EVERY 12 HOURS  INTRA-ARTERIAL
     Route: 013
     Dates: start: 20060922, end: 20061005

REACTIONS (3)
  - ACTIVITIES OF DAILY LIVING IMPAIRED [None]
  - RASH [None]
  - VERTIGO [None]
